FAERS Safety Report 7341561-2 (Version None)
Quarter: 2011Q1

REPORT INFORMATION
  Report Type: 
  Country: None (occurrence: None)
  Receive Date: 20110309
  Receipt Date: 20110304
  Transmission Date: 20110831
  Serious: Yes (Death)
  Sender: FDA-Public Use
  Company Number: PK-PFIZER INC-2011038171

PATIENT
  Sex: Male

DRUGS (2)
  1. INTERFERON [Concomitant]
     Dosage: UNK
  2. SUTENT [Suspect]
     Indication: METASTATIC RENAL CELL CARCINOMA
     Dosage: 12.5 MG, 1X/DAY. 4 WEEKS ON/2 WEEKS OFF
     Route: 048
     Dates: start: 20100101, end: 20100101

REACTIONS (1)
  - CARDIOPULMONARY FAILURE [None]
